FAERS Safety Report 5157629-5 (Version None)
Quarter: 2006Q4

REPORT INFORMATION
  Report Type: 
  Country: None (occurrence: None)
  Receive Date: 20061127
  Receipt Date: 20061120
  Transmission Date: 20070319
  Serious: Yes (Hospitalization)
  Sender: FDA-Public Use
  Company Number: IN-BRISTOL-MYERS SQUIBB COMPANY-13583810

PATIENT
  Sex: Female

DRUGS (1)
  1. BARACLUDE [Suspect]
     Indication: HEPATITIS B
     Dosage: THERAPY INTERRUPTED WHILE HOSPITALIZED, THEN RESTARTED ON 20-NOV-2006.
     Route: 048
     Dates: start: 20060918

REACTIONS (5)
  - ASCITES [None]
  - CONDITION AGGRAVATED [None]
  - ENZYME ABNORMALITY [None]
  - HEPATIC CIRRHOSIS [None]
  - PLEURAL EFFUSION [None]
